FAERS Safety Report 25146863 (Version 1)
Quarter: 2025Q2

REPORT INFORMATION
  Report Type: Spontaneous
  Country: NP (occurrence: NP)
  Receive Date: 20250401
  Receipt Date: 20250401
  Transmission Date: 20250717
  Serious: Yes (Death, Other)
  Sender: MEDEXUS PHARMA
  Company Number: NP-MEDEXUS PHARMA, INC.-2025MED00072

PATIENT
  Age: 51 Year
  Sex: Male

DRUGS (1)
  1. METHOTREXATE [Suspect]
     Active Substance: METHOTREXATE
     Indication: Rheumatoid arthritis
     Dosage: 15 MG, 1X/DAY

REACTIONS (8)
  - Haemorrhage intracranial [Fatal]
  - Pancytopenia [Fatal]
  - Thrombocytopenia [Fatal]
  - Toxicity to various agents [Unknown]
  - Oral disorder [Unknown]
  - Genital lesion [Unknown]
  - Pyrexia [Unknown]
  - Skin lesion [Unknown]
